FAERS Safety Report 5871263-0 (Version None)
Quarter: 2008Q3

REPORT INFORMATION
  Report Type: 
  Country: None (occurrence: None)
  Receive Date: 20080903
  Receipt Date: 20080903
  Transmission Date: 20090109
  Serious: Yes (Other)
  Sender: FDA-Public Use
  Company Number: None

PATIENT
  Sex: Male

DRUGS (1)
  1. PERCOCET [Suspect]
     Indication: NEUROPATHY PERIPHERAL
     Dosage: 10/325MG 1 TID PO
     Route: 048
     Dates: start: 20060101, end: 20070101

REACTIONS (3)
  - NERVOUSNESS [None]
  - PRURITUS GENERALISED [None]
  - URTICARIA [None]
